FAERS Safety Report 12924755 (Version 2)
Quarter: 2016Q4

REPORT INFORMATION
  Report Type: Report from Study
  Country: CN (occurrence: CN)
  Receive Date: 20161109
  Receipt Date: 20161215
  Transmission Date: 20170207
  Serious: Yes (Death, Hospitalization)
  Sender: FDA-Public Use
  Company Number: PHHO2013CN012539

PATIENT
  Age: 38 Year
  Sex: Female
  Weight: 56 kg

DRUGS (8)
  1. ICL670A [Suspect]
     Active Substance: DEFERASIROX
     Dosage: 40 MG/KG, QD
     Route: 048
     Dates: start: 20150323
  2. ICL670A [Suspect]
     Active Substance: DEFERASIROX
     Dosage: 20 MG/KG, QD
     Route: 048
     Dates: start: 20130108, end: 20130416
  3. ICL670A [Suspect]
     Active Substance: DEFERASIROX
     Indication: IRON OVERLOAD
     Dosage: 10 MG/KG, QD
     Route: 048
     Dates: start: 20121225, end: 20130107
  4. ICL670A [Suspect]
     Active Substance: DEFERASIROX
     Dosage: 40 MG/KG, QD
     Route: 048
     Dates: start: 20140415, end: 20140925
  5. ICL670A [Suspect]
     Active Substance: DEFERASIROX
     Dosage: 35 MG/KG, QD
     Route: 048
     Dates: start: 20140926, end: 20150322
  6. ICL670A [Suspect]
     Active Substance: DEFERASIROX
     Dosage: 35 MG/KG, QD
     Route: 048
     Dates: start: 20131030, end: 20140414
  7. ICL670A [Suspect]
     Active Substance: DEFERASIROX
     Dosage: 30 MG/KG, QD
     Route: 048
     Dates: start: 20130715, end: 20131029
  8. ICL670A [Suspect]
     Active Substance: DEFERASIROX
     Dosage: 25 MG/KG, QD
     Route: 048
     Dates: start: 20130417, end: 20130714

REACTIONS (16)
  - Skin infection [Not Recovered/Not Resolved]
  - Subcutaneous abscess [Recovered/Resolved]
  - Infection [Recovering/Resolving]
  - Infection [Not Recovered/Not Resolved]
  - Cholecystitis [Not Recovered/Not Resolved]
  - Pyrexia [Unknown]
  - Pyrexia [Recovered/Resolved]
  - Lung infection [Recovered/Resolved]
  - Haematoma [Recovered/Resolved]
  - Anaemia [Recovering/Resolving]
  - Pyrexia [Recovered/Resolved]
  - Lymphadenitis [Recovered/Resolved]
  - Lung infection [Recovering/Resolving]
  - Myelodysplastic syndrome [Fatal]
  - Lung infection [Recovered/Resolved]
  - Bacteraemia [Not Recovered/Not Resolved]

NARRATIVE: CASE EVENT DATE: 20130911
